FAERS Safety Report 14943930 (Version 2)
Quarter: 2018Q3

REPORT INFORMATION
  Report Type: Report from Study
  Country: CA (occurrence: CA)
  Receive Date: 20180528
  Receipt Date: 20180731
  Transmission Date: 20181010
  Serious: Yes (Other)
  Sender: FDA-Public Use
  Company Number: CA-BRISTOL-MYERS SQUIBB COMPANY-BMS-2018-045669

PATIENT
  Age: 60 Year
  Sex: Female

DRUGS (8)
  1. ALENDRONATE [Concomitant]
     Active Substance: ALENDRONATE SODIUM
     Indication: BONE DENSITOMETRY
     Dosage: 70 MG, QWK
     Route: 048
  2. PREDNISONE. [Concomitant]
     Active Substance: PREDNISONE
     Indication: RHEUMATOID ARTHRITIS
     Dosage: 5 MG, QD
     Route: 048
  3. ABATACEPT [Suspect]
     Active Substance: ABATACEPT
     Indication: RHEUMATOID ARTHRITIS
     Dosage: 125 MG, QWK
     Route: 058
     Dates: start: 20150102
  4. INCRUSE ELLIPTA [Concomitant]
     Active Substance: UMECLIDINIUM BROMIDE
     Indication: PRODUCT USED FOR UNKNOWN INDICATION
     Route: 065
  5. FLURBIPROFEN. [Concomitant]
     Active Substance: FLURBIPROFEN
     Indication: RHEUMATOID ARTHRITIS
     Dosage: 100 MG, BID
     Route: 048
  6. MISOPROSTOL. [Concomitant]
     Active Substance: MISOPROSTOL
     Indication: ABDOMINAL DISCOMFORT
     Dosage: 200 MG, BID
     Route: 048
  7. HYDROXYCHLOROQUINE [Concomitant]
     Active Substance: HYDROXYCHLOROQUINE
     Indication: RHEUMATOID ARTHRITIS
     Dosage: 200 MG, BID
     Route: 048
  8. ABATACEPT [Suspect]
     Active Substance: ABATACEPT
     Indication: PRODUCT USED FOR UNKNOWN INDICATION
     Dosage: 450 MG, Q4WK
     Route: 042
     Dates: start: 201503, end: 20180115

REACTIONS (1)
  - Invasive lobular breast carcinoma [Not Recovered/Not Resolved]

NARRATIVE: CASE EVENT DATE: 20180205
